FAERS Safety Report 24838179 (Version 1)
Quarter: 2025Q1

REPORT INFORMATION
  Report Type: Spontaneous
  Country: US (occurrence: None)
  Receive Date: 20250112
  Receipt Date: 20250112
  Transmission Date: 20250409
  Serious: No
  Sender: FDA-CTU
  Company Number: None

PATIENT
  Age: 72 Year
  Sex: Female
  Weight: 65.25 kg

DRUGS (2)
  1. ATORVASTATIN [Suspect]
     Active Substance: ATORVASTATIN
     Indication: Blood cholesterol increased
     Route: 048
     Dates: start: 20221001, end: 20250101
  2. PREGABALIN [Concomitant]
     Active Substance: PREGABALIN

REACTIONS (1)
  - Weight increased [None]

NARRATIVE: CASE EVENT DATE: 20250112
